FAERS Safety Report 4277089-6 (Version None)
Quarter: 2004Q1

REPORT INFORMATION
  Report Type: 
  Country: None (occurrence: None)
  Receive Date: 20040120
  Receipt Date: 20040120
  Transmission Date: 20041129
  Serious: Yes (Hospitalization)
  Sender: FDA-Public Use
  Company Number: None

PATIENT
  Age: 88 Year
  Sex: Male
  Weight: 72.5755 kg

DRUGS (13)
  1. METOPROLOL [Suspect]
     Indication: CORONARY ARTERY DISEASE
     Dosage: 100 MG PO BID
     Route: 048
     Dates: start: 20020922, end: 20031124
  2. METOPROLOL [Suspect]
     Indication: HYPERTENSION
     Dosage: 100 MG PO BID
     Route: 048
     Dates: start: 20020922, end: 20031124
  3. ASPIRIN [Concomitant]
  4. CYANOCOBALAMIN [Concomitant]
  5. ISOSORBIDE MONONITRATE [Concomitant]
  6. SYNTHROID [Concomitant]
  7. METOPROLOL TARTRATE [Concomitant]
  8. NEEDLE FOR INJECTING CYANCOBALAMIN(VITAMIN B12) [Concomitant]
  9. NITROGLYCERIN [Concomitant]
  10. NUTRITION SUPL ENSURE/VANILLA [Concomitant]
  11. RANITIDINE HCL [Concomitant]
  12. SENNOSIDES [Concomitant]
  13. SIMVASTATIN [Concomitant]

REACTIONS (3)
  - BRADYCARDIA [None]
  - DYSPNOEA [None]
  - FEELING ABNORMAL [None]
